FAERS Safety Report 17936583 (Version 1)
Quarter: 2020Q2

REPORT INFORMATION
  Report Type: Report from Study
  Country: DE (occurrence: DE)
  Receive Date: 20200624
  Receipt Date: 20200624
  Transmission Date: 20200714
  Serious: Yes (Life-Threatening, Hospitalization, Other)
  Sender: FDA-Public Use
  Company Number: DE-VERTEX PHARMACEUTICALS-2020-013004

PATIENT
  Age: 43 Year
  Sex: Male
  Weight: 54 kg

DRUGS (12)
  1. ELEXACAFTOR/TEZACAFTOR/IVACAFTOR AND IVACAFTOR [Suspect]
     Active Substance: ELEXACAFTOR\IVACAFTOR\TEZACAFTOR
     Indication: CYSTIC FIBROSIS
     Dosage: 2 TABLETS (100MG ELEXACAFTOR/ 50MG TEZACAFTOR/ 75MG IVACAFTOR) AM, 1 TABLET (150MG IVACAFTOR) PM
     Route: 048
     Dates: start: 20200613, end: 20200614
  2. BUDESONIDE;FORMOTEROL [Concomitant]
     Active Substance: BUDESONIDE\FORMOTEROL
  3. PREDNISOLONE. [Concomitant]
     Active Substance: PREDNISOLONE
  4. BENRALIZUMAB. [Concomitant]
     Active Substance: BENRALIZUMAB
     Dosage: UNK
     Route: 058
     Dates: start: 20200604
  5. TIOTROPIUM [Concomitant]
     Active Substance: TIOTROPIUM
  6. LEVOFLOXACIN. [Concomitant]
     Active Substance: LEVOFLOXACIN
  7. ADEK [Concomitant]
  8. FENOTEROL;IPRATROPIUM BROMIDE [Concomitant]
  9. MUCOCLEAR [SODIUM CHLORIDE] [Concomitant]
  10. PANTOPRAZOLE [Concomitant]
     Active Substance: PANTOPRAZOLE
  11. PANGROL [PANCREATIN] [Concomitant]
  12. FASENRA [Concomitant]
     Active Substance: BENRALIZUMAB

REACTIONS (3)
  - Respiratory failure [Not Recovered/Not Resolved]
  - Cystitis haemorrhagic [Unknown]
  - Infective pulmonary exacerbation of cystic fibrosis [Not Recovered/Not Resolved]

NARRATIVE: CASE EVENT DATE: 20200613
